FAERS Safety Report 18618515 (Version 1)
Quarter: 2020Q4

REPORT INFORMATION
  Report Type: Spontaneous
  Country: US (occurrence: US)
  Receive Date: 20201215
  Receipt Date: 20201215
  Transmission Date: 20210114
  Serious: No
  Sender: FDA-Public Use
  Company Number: US-TEVA-2020-US-1857565

PATIENT
  Age: 54 Year
  Sex: Female

DRUGS (1)
  1. ESTRADIOL. [Suspect]
     Active Substance: ESTRADIOL
     Dosage: START DATE: FOR A YEAR, DOSE: TWO TIMES PER WEEK
     Route: 067

REACTIONS (3)
  - Vulvovaginal discomfort [Unknown]
  - Vulvovaginal dryness [Unknown]
  - Vulvovaginal pain [Unknown]

NARRATIVE: CASE EVENT DATE: 2020
